FAERS Safety Report 25106670 (Version 3)
Quarter: 2025Q2

REPORT INFORMATION
  Report Type: Spontaneous
  Country: US (occurrence: US)
  Receive Date: 20250321
  Receipt Date: 20250428
  Transmission Date: 20250717
  Serious: No
  Sender: VIIV
  Company Number: US-ViiV Healthcare-122420

PATIENT
  Age: 31 Year
  Sex: Male

DRUGS (4)
  1. CABENUVA [Suspect]
     Active Substance: CABOTEGRAVIR\RILPIVIRINE
     Indication: Product used for unknown indication
     Dates: start: 20250312
  2. CABENUVA [Suspect]
     Active Substance: CABOTEGRAVIR\RILPIVIRINE
  3. CABENUVA [Suspect]
     Active Substance: CABOTEGRAVIR\RILPIVIRINE
  4. CABENUVA [Suspect]
     Active Substance: CABOTEGRAVIR\RILPIVIRINE
     Indication: Product used for unknown indication

REACTIONS (2)
  - Product preparation error [Unknown]
  - Product complaint [Unknown]

NARRATIVE: CASE EVENT DATE: 20250314
